FAERS Safety Report 5854006-6 (Version None)
Quarter: 2008Q3

REPORT INFORMATION
  Report Type: 
  Country: None (occurrence: None)
  Receive Date: 20080822
  Receipt Date: 20080811
  Transmission Date: 20090109
  Serious: Yes (Disabling, Other)
  Sender: FDA-Public Use
  Company Number: PHHY2008AU08321

PATIENT
  Sex: Male

DRUGS (5)
  1. RITALIN [Suspect]
     Indication: ATTENTION DEFICIT/HYPERACTIVITY DISORDER
     Dosage: 10 MG, UNK
     Route: 048
     Dates: start: 20071001
  2. RITALIN [Suspect]
     Dosage: 60 MG/DAY
     Route: 048
  3. RITALIN [Suspect]
     Dosage: 80 MG DAILY
     Route: 048
     Dates: end: 20080519
  4. LIPITOR [Concomitant]
     Dosage: 20 MG/DAY
  5. IMIGRAN [Concomitant]
     Dosage: INTERMITTENT

REACTIONS (4)
  - ANXIETY [None]
  - CONFUSIONAL STATE [None]
  - PARANOIA [None]
  - PSYCHOTIC DISORDER [None]
